FAERS Safety Report 12408296 (Version 1)
Quarter: 2016Q2

REPORT INFORMATION
  Report Type: Spontaneous
  Country: US (occurrence: US)
  Receive Date: 20160526
  Receipt Date: 20160526
  Transmission Date: 20160815
  Serious: No
  Sender: FDA-Public Use
  Company Number: US-PFIZER INC-2016254252

PATIENT
  Sex: Female

DRUGS (3)
  1. AMLODIPINE BESILATE [Suspect]
     Active Substance: AMLODIPINE BESYLATE
     Dosage: 5 MG, 1X/DAY
     Dates: start: 201512, end: 201604
  2. AMLODIPINE BESILATE [Suspect]
     Active Substance: AMLODIPINE BESYLATE
     Dosage: 5 MG, 1X/DAY
     Dates: start: 201604
  3. LOSARTIN [Suspect]
     Active Substance: LOSARTAN
     Dosage: 400 MG, 2X/DAY

REACTIONS (4)
  - Back injury [Unknown]
  - Asthenia [Unknown]
  - Weight decreased [Unknown]
  - Hypotension [Unknown]
